FAERS Safety Report 8472927-5 (Version None)
Quarter: 2012Q2

REPORT INFORMATION
  Report Type: 
  Country: None (occurrence: None)
  Receive Date: 20120627
  Receipt Date: 20120610
  Transmission Date: 20120825
  Serious: No
  Sender: FDA-Public Use
  Company Number: US-BAYER-2012-058694

PATIENT
  Sex: Female

DRUGS (6)
  1. ALEVE (CAPLET) [Suspect]
     Indication: PAIN
     Route: 048
  2. MOTRIN [Concomitant]
  3. ANALGESICS [Concomitant]
  4. IBUPROFEN [Concomitant]
  5. MIRENA [Concomitant]
  6. IBUPROFEN (ADVIL) [Concomitant]

REACTIONS (1)
  - PAIN [None]
